FAERS Safety Report 11469814 (Version 1)
Quarter: 2015Q3

REPORT INFORMATION
  Report Type: Spontaneous
  Country: US (occurrence: US)
  Receive Date: 20150908
  Receipt Date: 20150908
  Transmission Date: 20151125
  Serious: No
  Sender: FDA-Public Use
  Company Number: US-JNJFOC-20150815365

PATIENT
  Age: 62 Year
  Sex: Female
  Weight: 68.04 kg

DRUGS (2)
  1. ZYRTEC [Suspect]
     Active Substance: CETIRIZINE HYDROCHLORIDE
     Indication: MULTIPLE ALLERGIES
     Dosage: AS NEEDED
     Route: 048
     Dates: start: 2005
  2. ZYRTEC [Suspect]
     Active Substance: CETIRIZINE HYDROCHLORIDE
     Indication: URTICARIA
     Dosage: AS NEEDED
     Route: 048
     Dates: start: 2005

REACTIONS (5)
  - Feeling abnormal [Recovering/Resolving]
  - Agitation [Recovering/Resolving]
  - Drug prescribing error [Unknown]
  - Somnolence [Recovering/Resolving]
  - Wrong technique in product usage process [Recovering/Resolving]
